FAERS Safety Report 20320924 (Version 1)
Quarter: 2022Q1

REPORT INFORMATION
  Report Type: Spontaneous
  Country: US (occurrence: US)
  Receive Date: 20220111
  Receipt Date: 20220111
  Transmission Date: 20220423
  Serious: Yes (Hospitalization)
  Sender: FDA-Public Use
  Company Number: US-ABBVIE-22K-163-4228885-00

PATIENT
  Age: 62 Year
  Sex: Male
  Weight: 87.48 kg

DRUGS (2)
  1. VENCLEXTA [Suspect]
     Active Substance: VENETOCLAX
     Indication: Product used for unknown indication
     Route: 048
  2. JAKAFI [Suspect]
     Active Substance: RUXOLITINIB
     Indication: Acute myeloid leukaemia
     Route: 048

REACTIONS (5)
  - Dysphagia [Unknown]
  - Staphylococcus test positive [Unknown]
  - Throat tightness [Unknown]
  - Off label use [Unknown]
  - Nausea [Unknown]
